FAERS Safety Report 5871471-9 (Version None)
Quarter: 2008Q3

REPORT INFORMATION
  Report Type: 
  Country: None (occurrence: None)
  Receive Date: 20080905
  Receipt Date: 20080408
  Transmission Date: 20090109
  Serious: No
  Sender: FDA-Public Use
  Company Number: A0708104A

PATIENT
  Age: 65 Year
  Sex: Female

DRUGS (10)
  1. REQUIP [Suspect]
     Indication: RESTLESS LEGS SYNDROME
     Dosage: .25MG AT NIGHT
     Route: 048
     Dates: start: 20070101
  2. EFFEXOR XR [Concomitant]
  3. VYTORIN [Concomitant]
  4. ALEVE [Concomitant]
  5. ASPIRIN [Concomitant]
  6. MAGNESIUM SULFATE [Concomitant]
  7. ASCORBIC ACID [Concomitant]
  8. SUPER B COMPLEX [Concomitant]
  9. ODOURLESS GARLIC [Concomitant]
  10. OMEGA 3 COMPLEX [Concomitant]

REACTIONS (1)
  - DRUG INEFFECTIVE [None]
